FAERS Safety Report 16934064 (Version 1)
Quarter: 2019Q4

REPORT INFORMATION
  Report Type: Spontaneous
  Country: US (occurrence: US)
  Receive Date: 20191018
  Receipt Date: 20191018
  Transmission Date: 20200122
  Serious: No
  Sender: FDA-Public Use
  Company Number: US-MYLANLABS-2019M1092458

PATIENT
  Age: 66 Year
  Sex: Male

DRUGS (1)
  1. LIDOCAINE. [Suspect]
     Active Substance: LIDOCAINE
     Indication: BACK PAIN
     Dosage: DAILY
     Route: 003

REACTIONS (3)
  - Product quality issue [Not Recovered/Not Resolved]
  - Off label use [Unknown]
  - Product adhesion issue [Not Recovered/Not Resolved]
